FAERS Safety Report 10509189 (Version 1)
Quarter: 2014Q3

REPORT INFORMATION
  Report Type: Spontaneous
  Country: US (occurrence: None)
  Receive Date: 20140915
  Receipt Date: 20140915
  Transmission Date: 20150326
  Serious: Yes (Other)
  Sender: FDA-Public Use
  Company Number: 2014-US-003114

PATIENT
  Age: 27 Year
  Sex: Female

DRUGS (2)
  1. XYREM [Suspect]
     Active Substance: SODIUM OXYBATE
     Route: 048
     Dates: start: 20140214, end: 201403
  2. XYREM [Suspect]
     Active Substance: SODIUM OXYBATE
     Indication: NARCOLEPSY
     Route: 048
     Dates: start: 20140214, end: 201403

REACTIONS (5)
  - Chest pain [None]
  - Hangover [None]
  - Abdominal pain upper [None]
  - Decreased appetite [None]
  - Weight decreased [None]

NARRATIVE: CASE EVENT DATE: 20140214
